FAERS Safety Report 10249664 (Version 1)
Quarter: 2014Q2

REPORT INFORMATION
  Report Type: Spontaneous
  Country: US (occurrence: None)
  Receive Date: 20140619
  Receipt Date: 20140619
  Transmission Date: 20141212
  Serious: Yes (Hospitalization)
  Sender: FDA-Public Use
  Company Number: None

PATIENT
  Age: 76 Year
  Sex: Female
  Weight: 78.3 kg

DRUGS (17)
  1. CLARITIN-D [Suspect]
     Indication: HYPERSENSITIVITY
  2. ATORVASTATIN [Concomitant]
  3. ISOSORBIDE MONONITRATE [Concomitant]
  4. ZETIA [Concomitant]
  5. NEXIUM [Concomitant]
  6. ZOFRAN [Concomitant]
  7. NORCO [Concomitant]
  8. CLOPIDOGREL [Concomitant]
  9. PRAMIPEXOLE [Concomitant]
  10. METOPROLOL [Concomitant]
  11. ARMOUR THYROID [Concomitant]
  12. PREDNISONE [Concomitant]
  13. PLETAL [Concomitant]
  14. ATIVAN [Concomitant]
  15. ASPIRIN [Concomitant]
  16. FOLIC ACID [Concomitant]
  17. FLUOXETINE [Concomitant]

REACTIONS (5)
  - Palpitations [None]
  - Asthenia [None]
  - Malaise [None]
  - Supraventricular tachycardia [None]
  - Dizziness [None]
